FAERS Safety Report 15629651 (Version 1)
Quarter: 2018Q4

REPORT INFORMATION
  Report Type: Spontaneous
  Country: FR (occurrence: FR)
  Receive Date: 20181117
  Receipt Date: 20181117
  Transmission Date: 20190205
  Serious: Yes (Hospitalization)
  Sender: FDA-Public Use
  Company Number: FR-TEVA-2018-FR-975671

PATIENT
  Age: 70 Year
  Sex: Male
  Weight: 65 kg

DRUGS (6)
  1. ATORVASTATINE [Suspect]
     Active Substance: ATORVASTATIN
     Dosage: 80 MILLIGRAM DAILY;
     Route: 048
     Dates: end: 201810
  2. CLOPIDOGREL (CHLORHYDRATE DE) [Suspect]
     Active Substance: CLOPIDOGREL HYDROCHLORIDE
     Indication: ISCHAEMIC HEART DISEASE PROPHYLAXIS
     Dosage: 75 MILLIGRAM DAILY;
     Route: 048
     Dates: end: 201810
  3. ESOMEPRAZOLE. [Suspect]
     Active Substance: ESOMEPRAZOLE MAGNESIUM
     Route: 048
  4. AMIODARONE [Suspect]
     Active Substance: AMIODARONE
     Indication: ARRHYTHMIA
     Route: 048
     Dates: end: 201810
  5. BISOPROLOL (HEMIFUMARATE DE) [Suspect]
     Active Substance: BISOPROLOL FUMARATE
     Route: 048
     Dates: end: 201810
  6. KARDEGIC [Suspect]
     Active Substance: ASPIRIN DL-LYSINE
     Indication: ISCHAEMIC HEART DISEASE PROPHYLAXIS
     Dosage: 75 MILLIGRAM DAILY;
     Route: 048

REACTIONS (2)
  - Respiratory distress [Recovered/Resolved with Sequelae]
  - Interstitial lung disease [Not Recovered/Not Resolved]

NARRATIVE: CASE EVENT DATE: 201810
